FAERS Safety Report 4424491-5 (Version None)
Quarter: 2004Q3

REPORT INFORMATION
  Report Type: 
  Country: None (occurrence: None)
  Receive Date: 20040812
  Receipt Date: 20040810
  Transmission Date: 20050211
  Serious: Yes (Hospitalization)
  Sender: FDA-Public Use
  Company Number: FR-GLAXOSMITHKLINE-B0341889A

PATIENT
  Age: 23 Year
  Sex: Female

DRUGS (11)
  1. AUGMENTIN '125' [Suspect]
     Indication: INFECTION PROPHYLAXIS
     Dosage: 1G PER DAY
     Route: 042
     Dates: start: 20040629, end: 20040704
  2. PROPOFAN [Suspect]
     Route: 048
     Dates: start: 20040707, end: 20040707
  3. KETOPROFEN [Suspect]
     Route: 050
     Dates: start: 20040630, end: 20040704
  4. PANOS [Concomitant]
     Dosage: .5TAB PER DAY
     Route: 048
     Dates: start: 20040707, end: 20040707
  5. PENICILLIN G [Suspect]
     Dosage: 7500000IU UNKNOWN
     Route: 042
     Dates: start: 20040629, end: 20040629
  6. MIOREL [Concomitant]
     Dosage: 4MG TWICE PER DAY
     Route: 048
     Dates: start: 20040707, end: 20040707
  7. LOVENOX [Concomitant]
     Dosage: 40IU PER DAY
     Route: 065
     Dates: start: 20040630, end: 20040705
  8. PERFALGAN [Concomitant]
     Route: 065
     Dates: start: 20040630, end: 20040701
  9. ACETAMINOPHEN [Concomitant]
     Route: 065
     Dates: start: 20040704, end: 20040704
  10. TARDYFERON [Concomitant]
     Route: 065
     Dates: start: 20040701, end: 20040704
  11. HOMEOPATHIC MEDICATION [Concomitant]
     Indication: SUPPRESSED LACTATION
     Route: 048
     Dates: start: 20040703

REACTIONS (17)
  - AMAUROSIS FUGAX [None]
  - BACK PAIN [None]
  - BLOOD PRESSURE INCREASED [None]
  - CAESAREAN SECTION [None]
  - CEREBRAL ISCHAEMIA [None]
  - CONVULSION [None]
  - DISORIENTATION [None]
  - DRUG EXPOSURE DURING PREGNANCY [None]
  - EXTENSOR PLANTAR RESPONSE [None]
  - HEADACHE [None]
  - HEART RATE INCREASED [None]
  - INFLAMMATION [None]
  - MYOCLONUS [None]
  - POLYDIPSIA [None]
  - RENAL FAILURE [None]
  - RENAL TUBULAR NECROSIS [None]
  - TONGUE BITING [None]
